FAERS Safety Report 25659904 (Version 3)
Quarter: 2025Q4

REPORT INFORMATION
  Report Type: Spontaneous
  Country: US (occurrence: US)
  Receive Date: 20250808
  Receipt Date: 20251105
  Transmission Date: 20260117
  Serious: No
  Sender: APOTEX
  Company Number: US-APOTEX-2025AP010728

PATIENT
  Sex: Male

DRUGS (1)
  1. AZELASTINE HYDROCHLORIDE [Suspect]
     Active Substance: AZELASTINE HYDROCHLORIDE
     Indication: Hypersensitivity
     Dosage: 2 GTT DROPS, BID (1 IN THE MORNING AND 1 IN THE EVENING)
     Dates: start: 2025

REACTIONS (9)
  - Swelling of eyelid [Recovering/Resolving]
  - Erythema of eyelid [Recovering/Resolving]
  - Hordeolum [Recovering/Resolving]
  - Eye discharge [Recovering/Resolving]
  - Lacrimation increased [Recovering/Resolving]
  - Eye pruritus [Recovering/Resolving]
  - Vision blurred [Recovering/Resolving]
  - Recalled product administered [Unknown]
  - Suspected product contamination [Unknown]

NARRATIVE: CASE EVENT DATE: 20250101
